FAERS Safety Report 10170364 (Version 1)
Quarter: 2014Q2

REPORT INFORMATION
  Report Type: Spontaneous
  Country: JP (occurrence: JP)
  Receive Date: 20140513
  Receipt Date: 20140513
  Transmission Date: 20141212
  Serious: Yes (Other)
  Sender: FDA-Public Use
  Company Number: JP-PFIZER INC-2014126896

PATIENT
  Age: 67 Year
  Sex: Female

DRUGS (6)
  1. ZITHROMAC [Suspect]
     Indication: TONSILLITIS
     Dosage: UNK
     Route: 048
  2. ZITHROMAC [Suspect]
     Indication: UPPER RESPIRATORY TRACT INFLAMMATION
  3. TARIVID [Suspect]
     Indication: TONSILLITIS
     Dosage: UNK
  4. TARIVID [Suspect]
     Indication: UPPER RESPIRATORY TRACT INFLAMMATION
  5. VOLTAREN [Concomitant]
     Dosage: UNK
  6. LOXONIN [Concomitant]
     Dosage: UNK

REACTIONS (3)
  - Haemolytic anaemia [Recovered/Resolved]
  - Rhabdomyolysis [Unknown]
  - Renal failure acute [Unknown]
